FAERS Safety Report 4416014-1 (Version None)
Quarter: 2004Q3

REPORT INFORMATION
  Report Type: 
  Country: None (occurrence: None)
  Receive Date: 20040804
  Receipt Date: 20040804
  Transmission Date: 20050211
  Serious: Yes (Other)
  Sender: FDA-Public Use
  Company Number: None

PATIENT
  Age: 70 Year
  Sex: Female

DRUGS (1)
  1. VISIPAQUE 320 [Suspect]
     Dosage: 500 CC IA
     Dates: start: 20040722

REACTIONS (5)
  - ARTERIAL STENOSIS [None]
  - CEREBELLAR INFARCTION [None]
  - HEMIPLEGIA [None]
  - MENTAL STATUS CHANGES [None]
  - POST PROCEDURAL COMPLICATION [None]
